FAERS Safety Report 9863339 (Version 1)
Quarter: 2014Q1

REPORT INFORMATION
  Report Type: Report from Study
  Country: US (occurrence: US)
  Receive Date: 20140203
  Receipt Date: 20140203
  Transmission Date: 20141002
  Serious: Yes (Hospitalization)
  Sender: FDA-Public Use
  Company Number: US-ROCHE-1314524

PATIENT
  Sex: Female

DRUGS (13)
  1. AVASTIN [Suspect]
     Indication: BREAST CANCER
     Route: 002
     Dates: start: 2010
  2. GEMZAR [Concomitant]
     Route: 042
  3. ABRAXANE [Concomitant]
     Route: 042
  4. ARIXTRA [Concomitant]
     Indication: THROMBOSIS
     Route: 058
  5. BYSTOLIC [Concomitant]
     Route: 048
  6. CINNAMON [Concomitant]
     Route: 048
  7. NEXIUM [Concomitant]
     Route: 048
  8. FLONASE [Concomitant]
     Dosage: 1 SPRAY EACH NOSTRIL
     Route: 065
  9. LASIX [Concomitant]
     Route: 048
  10. NEURONTIN (UNITED STATES) [Concomitant]
     Route: 048
  11. HEPARIN FLUSH [Concomitant]
     Route: 065
  12. MAGNESIUM OXIDE [Concomitant]
     Route: 048
  13. NEUPOGEN [Concomitant]
     Route: 065

REACTIONS (19)
  - Arterial fibrosis [Unknown]
  - Bronchitis [Unknown]
  - Pyrexia [Unknown]
  - Neuropathy peripheral [Unknown]
  - Lymphoedema [Unknown]
  - Oedema peripheral [Unknown]
  - Weight increased [Unknown]
  - Oedema [Unknown]
  - Hepatic artery occlusion [Unknown]
  - Fatigue [Unknown]
  - Skin ulcer [Unknown]
  - Hyperglycaemia [Unknown]
  - Oedema peripheral [Unknown]
  - Dizziness [Unknown]
  - Headache [Unknown]
  - Thrombocytopenia [Unknown]
  - Hypertension [Unknown]
  - Anaemia [Unknown]
  - Electrolyte imbalance [Unknown]
